FAERS Safety Report 5216131-2 (Version None)
Quarter: 2007Q1

REPORT INFORMATION
  Report Type: 
  Country: None (occurrence: None)
  Receive Date: 20070118
  Receipt Date: 20061229
  Transmission Date: 20070707
  Serious: Yes (Hospitalization)
  Sender: FDA-Public Use
  Company Number: 0609-641

PATIENT
  Age: 69 Year
  Sex: Female
  Weight: 75.2971 kg

DRUGS (5)
  1. DUONEB [Suspect]
     Indication: PULMONARY GRANULOMA
     Dosage: 1 VIAL 6-8 HRS-NEBULIZER
  2. CARDIZEM [Concomitant]
  3. SECTRAL [Concomitant]
  4. SINGULAIR [Concomitant]
  5. DIGOXIN [Concomitant]

REACTIONS (2)
  - ATRIAL FIBRILLATION [None]
  - HEART RATE INCREASED [None]
